FAERS Safety Report 11343369 (Version 1)
Quarter: 2015Q3

REPORT INFORMATION
  Report Type: Spontaneous
  Country: SI (occurrence: SI)
  Receive Date: 20150806
  Receipt Date: 20150806
  Transmission Date: 20151125
  Serious: Yes (Death)
  Sender: FDA-Public Use
  Company Number: SI-ACCORD-032702

PATIENT
  Age: 67 Year
  Sex: Male

DRUGS (1)
  1. CARBIDOPA/LEVODOPA [Suspect]
     Active Substance: CARBIDOPA\LEVODOPA
     Indication: PARKINSON^S DISEASE
     Dosage: LEVODOPA-CARBIDOPA INTESTINAL GEL (LCIG). LCIG DOSAGE WAS OPTIMIZED WITHIN 3WK.

REACTIONS (2)
  - Asphyxia [None]
  - Completed suicide [Fatal]
